FAERS Safety Report 9894086 (Version 1)
Quarter: 2014Q1

REPORT INFORMATION
  Report Type: Spontaneous
  Country: GB (occurrence: GB)
  Receive Date: 20140213
  Receipt Date: 20140213
  Transmission Date: 20141002
  Serious: Yes (Other)
  Sender: FDA-Public Use
  Company Number: PHHY2014GB013580

PATIENT
  Sex: Male

DRUGS (8)
  1. IRINOTECAN [Suspect]
     Indication: COLORECTAL CANCER METASTATIC
     Route: 042
  2. IRINOTECAN [Suspect]
     Route: 042
  3. FOLINIC ACID [Suspect]
     Indication: COLORECTAL CANCER METASTATIC
     Route: 042
  4. FOLINIC ACID [Suspect]
     Route: 042
  5. FLUOROURACIL EBEWE [Suspect]
     Indication: COLORECTAL CANCER METASTATIC
     Route: 042
  6. FLUOROURACIL EBEWE [Suspect]
     Route: 042
  7. ZALTRAP [Suspect]
     Indication: COLORECTAL CANCER METASTATIC
     Route: 042
  8. ZALTRAP [Suspect]
     Route: 042

REACTIONS (2)
  - Pulmonary embolism [Not Recovered/Not Resolved]
  - Cardiac disorder [Not Recovered/Not Resolved]
